FAERS Safety Report 4429807-1 (Version None)
Quarter: 2004Q3

REPORT INFORMATION
  Report Type: 
  Country: None (occurrence: None)
  Receive Date: 20040818
  Receipt Date: 20040818
  Transmission Date: 20050211
  Serious: Yes (Life-Threatening, Hospitalization)
  Sender: FDA-Public Use
  Company Number: None

PATIENT
  Age: 79 Year
  Sex: Female
  Weight: 63.5 kg

DRUGS (7)
  1. PHENERGAN HCL [Suspect]
     Indication: NAUSEA
     Dosage: 25MG PRN INTRAVENOUS
     Route: 042
     Dates: start: 20040331, end: 20040401
  2. PHENERGAN HCL [Suspect]
     Indication: VOMITING
     Dosage: 25MG PRN INTRAVENOUS
     Route: 042
     Dates: start: 20040331, end: 20040401
  3. POTASSIUM [Concomitant]
  4. LASIX [Concomitant]
  5. ZOCOR [Concomitant]
  6. MOTRIN [Concomitant]
  7. B12 INJECTION [Concomitant]

REACTIONS (3)
  - AGITATION [None]
  - HEART RATE INCREASED [None]
  - RESTLESSNESS [None]
